FAERS Safety Report 4871395-X (Version None)
Quarter: 2005Q4

REPORT INFORMATION
  Report Type: 
  Country: None (occurrence: None)
  Receive Date: 20051229
  Receipt Date: 20051215
  Transmission Date: 20060501
  Serious: Yes (Death, Other)
  Sender: FDA-Public Use
  Company Number: US200512002526

PATIENT
  Sex: Male

DRUGS (2)
  1. XIGRIS [Suspect]
     Indication: SEPSIS
  2. XIGRIS [Suspect]
     Indication: SEPSIS

REACTIONS (3)
  - CENTRAL LINE INFECTION [None]
  - DISEASE RECURRENCE [None]
  - SEPSIS [None]
